FAERS Safety Report 5699576-6 (Version None)
Quarter: 2008Q2

REPORT INFORMATION
  Report Type: 
  Country: None (occurrence: None)
  Receive Date: 20080410
  Receipt Date: 20080401
  Transmission Date: 20081010
  Serious: Yes (Hospitalization)
  Sender: FDA-Public Use
  Company Number: DE-TEVA-169599ISR

PATIENT
  Sex: Female
  Weight: 81 kg

DRUGS (7)
  1. FLUOROURACIL [Suspect]
     Indication: COLORECTAL CANCER METASTATIC
     Route: 042
     Dates: start: 20070626, end: 20070904
  2. FOLINIC ACID [Suspect]
     Indication: COLORECTAL CANCER METASTATIC
     Route: 042
     Dates: start: 20070626, end: 20070904
  3. IRINOTECAN HYDROCHLORIDE [Suspect]
     Indication: COLORECTAL CANCER METASTATIC
     Route: 042
     Dates: start: 20070626, end: 20070904
  4. BEVACIZUMAB [Suspect]
     Indication: COLORECTAL CANCER METASTATIC
     Route: 042
     Dates: start: 20070626, end: 20070904
  5. GRANISETRON HYDROCHLORIDE [Concomitant]
     Route: 042
     Dates: start: 20070626, end: 20070904
  6. DEXAMETHASONE [Concomitant]
     Route: 042
     Dates: start: 20070626, end: 20070904
  7. ATROPINE SULFATE [Concomitant]
     Route: 058
     Dates: start: 20070626, end: 20070904

REACTIONS (2)
  - PULMONARY EMBOLISM [None]
  - THROMBOSIS [None]
